FAERS Safety Report 6370177-X (Version None)
Quarter: 2009Q3

REPORT INFORMATION
  Report Type: 
  Country: None (occurrence: None)
  Receive Date: 20090921
  Receipt Date: 20090921
  Transmission Date: 20100115
  Serious: Yes (Disabling)
  Sender: FDA-Public Use
  Company Number: None

PATIENT
  Sex: Male
  Weight: 104.3273 kg

DRUGS (1)
  1. REGLAN [Suspect]
     Indication: GASTROOESOPHAGEAL REFLUX DISEASE
     Dosage: 10MG 3X'S DAILY P.O.
     Route: 048
     Dates: start: 20090704, end: 20090815

REACTIONS (17)
  - ANXIETY [None]
  - ARTHRALGIA [None]
  - ASTHENIA [None]
  - BACK PAIN [None]
  - DEPRESSION [None]
  - DROOLING [None]
  - DYSPNOEA [None]
  - FALL [None]
  - FATIGUE [None]
  - INCONTINENCE [None]
  - INSOMNIA [None]
  - MASKED FACIES [None]
  - NIGHTMARE [None]
  - POLLAKIURIA [None]
  - RESTLESSNESS [None]
  - STRABISMUS [None]
  - TREMOR [None]
